FAERS Safety Report 6304762-8 (Version None)
Quarter: 2009Q3

REPORT INFORMATION
  Report Type: 
  Country: None (occurrence: None)
  Receive Date: 20090811
  Receipt Date: 20090803
  Transmission Date: 20100115
  Serious: Yes (Other)
  Sender: FDA-Public Use
  Company Number: B0588137A

PATIENT
  Age: 81 Year
  Sex: Male

DRUGS (8)
  1. AMOXIL [Suspect]
     Indication: RESPIRATORY TRACT INFECTION
     Route: 065
     Dates: start: 20090627
  2. AMOXIL [Concomitant]
  3. CODEINE LINCTUS [Concomitant]
  4. SINEX [Concomitant]
  5. CODRAL [Concomitant]
  6. SYMBICORT [Concomitant]
  7. PARIET [Concomitant]
  8. UNKNOWN DRUG [Concomitant]

REACTIONS (4)
  - BLOOD URIC ACID DECREASED [None]
  - CONDITION AGGRAVATED [None]
  - GOUT [None]
  - PAIN IN EXTREMITY [None]
